FAERS Safety Report 6976924-8 (Version None)
Quarter: 2010Q3

REPORT INFORMATION
  Report Type: 
  Country: None (occurrence: None)
  Receive Date: 20100910
  Receipt Date: 20100909
  Transmission Date: 20110219
  Serious: Yes (Life-Threatening)
  Sender: FDA-Public Use
  Company Number: US-CEPHALON-2010004613

PATIENT
  Sex: Female

DRUGS (2)
  1. NUVIGIL [Suspect]
     Route: 048
     Dates: start: 20091202, end: 20100726
  2. NUVIGIL [Suspect]
     Route: 048
     Dates: start: 20100624, end: 20100723

REACTIONS (4)
  - ABNORMAL BEHAVIOUR [None]
  - DRUG ABUSE [None]
  - DRUG DIVERSION [None]
  - INTENTIONAL DRUG MISUSE [None]
